FAERS Safety Report 9720203 (Version 1)
Quarter: 2013Q4

REPORT INFORMATION
  Report Type: Spontaneous
  Country: FR (occurrence: FR)
  Receive Date: 20131129
  Receipt Date: 20131129
  Transmission Date: 20140711
  Serious: Yes (Other)
  Sender: FDA-Public Use
  Company Number: FR-ROCHE-1308574

PATIENT
  Age: 84 Year
  Sex: Female

DRUGS (11)
  1. AVASTIN [Suspect]
     Indication: COLON CANCER
     Dosage: 25 MG/ML CONCENTRATE FOR SOLUTION FOR INFUSION
     Route: 041
     Dates: start: 20130206, end: 20130415
  2. AVASTIN [Suspect]
     Route: 041
     Dates: start: 20130607
  3. FLUOROURACIL [Suspect]
     Indication: COLON CANCER
     Route: 041
     Dates: start: 20130206, end: 20130415
  4. FLUOROURACIL [Suspect]
     Route: 041
     Dates: start: 20130607, end: 20130705
  5. FLUOROURACIL [Suspect]
     Route: 041
     Dates: start: 20130719
  6. AMLODIPINE [Suspect]
     Indication: ATRIAL FIBRILLATION
     Route: 048
  7. AMIODARONE [Suspect]
     Indication: ATRIAL FIBRILLATION
     Route: 048
  8. OXALIPLATIN [Concomitant]
     Route: 065
     Dates: start: 20130206, end: 20130415
  9. FOLINIC ACID [Concomitant]
     Route: 065
     Dates: start: 20130206, end: 20130415
  10. INNOHEP [Concomitant]
  11. KARDEGIC [Concomitant]
     Route: 065

REACTIONS (3)
  - Palmar-plantar erythrodysaesthesia syndrome [Not Recovered/Not Resolved]
  - Purpura [Not Recovered/Not Resolved]
  - Spontaneous haematoma [Not Recovered/Not Resolved]
